FAERS Safety Report 4675852-0 (Version None)
Quarter: 2005Q2

REPORT INFORMATION
  Report Type: 
  Country: None (occurrence: None)
  Receive Date: 20050527
  Receipt Date: 20050302
  Transmission Date: 20051028
  Serious: Yes (Life-Threatening, Hospitalization)
  Sender: FDA-Public Use
  Company Number: GBWYE472703MAR05

PATIENT
  Sex: Female

DRUGS (4)
  1. ENBREL [Suspect]
     Indication: PSORIATIC ARTHROPATHY
     Dosage: UNKNOWN
     Route: 058
     Dates: start: 20040101
  2. ENBREL [Suspect]
     Route: 058
     Dates: start: 20050101
  3. METHOTREXATE [Concomitant]
  4. OILATUM EMOLLIENT [Concomitant]
     Dates: start: 20030101

REACTIONS (2)
  - PANCYTOPENIA [None]
  - PERNICIOUS ANAEMIA [None]
